FAERS Safety Report 25955753 (Version 1)
Quarter: 2025Q4

REPORT INFORMATION
  Report Type: Spontaneous
  Country: US (occurrence: US)
  Receive Date: 20251024
  Receipt Date: 20251024
  Transmission Date: 20260118
  Serious: No
  Sender: AUROBINDO
  Company Number: US-AUROBINDO-AUR-APL-2025-048123

PATIENT
  Age: 42 Year
  Sex: Female

DRUGS (2)
  1. MYCOPHENOLIC ACID [Suspect]
     Active Substance: MYCOPHENOLIC ACID
     Indication: Product used for unknown indication
     Dosage: UNK
     Route: 065
  2. LUPKYNIS [Concomitant]
     Active Substance: VOCLOSPORIN
     Indication: Intrauterine contraception
     Dosage: 23.75 MILLIGRAM, TWO TIMES A DAY
     Route: 048
     Dates: start: 20231029

REACTIONS (3)
  - Alopecia [Unknown]
  - White blood cell count decreased [Recovering/Resolving]
  - Off label use [Unknown]
